FAERS Safety Report 22135117 (Version 1)
Quarter: 2023Q1

REPORT INFORMATION
  Report Type: Spontaneous
  Country: CA (occurrence: None)
  Receive Date: 20230324
  Receipt Date: 20230324
  Transmission Date: 20230417
  Serious: Yes (Other)
  Sender: FDA-Public Use
  Company Number: CA-ROCHE-3316149

PATIENT
  Age: 77 Year
  Sex: Male

DRUGS (41)
  1. CLONAZEPAM [Suspect]
     Active Substance: CLONAZEPAM
     Indication: Parkinsonian rest tremor
     Route: 048
  2. CLONAZEPAM [Suspect]
     Active Substance: CLONAZEPAM
     Indication: Parkinson^s disease
  3. CLONAZEPAM [Suspect]
     Active Substance: CLONAZEPAM
     Indication: Head titubation
  4. AMANTADINE [Suspect]
     Active Substance: AMANTADINE
     Indication: Parkinsonian rest tremor
     Route: 065
  5. AMANTADINE [Suspect]
     Active Substance: AMANTADINE
     Indication: Parkinson^s disease
  6. AMANTADINE [Suspect]
     Active Substance: AMANTADINE
     Indication: Head titubation
  7. AMANTADINE [Suspect]
     Active Substance: AMANTADINE
     Indication: Resting tremor
  8. BENSERAZIDE HYDROCHLORIDE\LEVODOPA [Suspect]
     Active Substance: BENSERAZIDE HYDROCHLORIDE\LEVODOPA
     Indication: Parkinson^s disease
     Route: 065
  9. BENSERAZIDE HYDROCHLORIDE\LEVODOPA [Suspect]
     Active Substance: BENSERAZIDE HYDROCHLORIDE\LEVODOPA
     Indication: Resting tremor
  10. CARBIDOPA [Suspect]
     Active Substance: CARBIDOPA
     Indication: Dysphonia
     Route: 065
  11. CARBIDOPA [Suspect]
     Active Substance: CARBIDOPA
     Indication: Tremor
  12. ETHOPROPAZINE [Suspect]
     Active Substance: ETHOPROPAZINE
     Indication: Parkinsonian rest tremor
     Route: 065
  13. ETHOPROPAZINE [Suspect]
     Active Substance: ETHOPROPAZINE
     Indication: Head titubation
  14. ETHOPROPAZINE [Suspect]
     Active Substance: ETHOPROPAZINE
     Indication: Parkinson^s disease
  15. ETHOPROPAZINE [Suspect]
     Active Substance: ETHOPROPAZINE
     Indication: Resting tremor
  16. GABAPENTIN [Suspect]
     Active Substance: GABAPENTIN
     Indication: Parkinsonian rest tremor
     Route: 065
  17. GABAPENTIN [Suspect]
     Active Substance: GABAPENTIN
     Indication: Parkinson^s disease
  18. GABAPENTIN [Suspect]
     Active Substance: GABAPENTIN
     Indication: Head titubation
  19. GABAPENTIN [Suspect]
     Active Substance: GABAPENTIN
     Indication: Resting tremor
  20. PRAMIPEXOLE [Suspect]
     Active Substance: PRAMIPEXOLE
     Indication: Parkinsonian rest tremor
     Route: 065
  21. PRAMIPEXOLE [Suspect]
     Active Substance: PRAMIPEXOLE
     Indication: Parkinson^s disease
  22. PRAMIPEXOLE [Suspect]
     Active Substance: PRAMIPEXOLE
     Indication: Head titubation
  23. PRAMIPEXOLE [Suspect]
     Active Substance: PRAMIPEXOLE
     Indication: Resting tremor
  24. PRIMIDONE [Suspect]
     Active Substance: PRIMIDONE
     Indication: Parkinsonian rest tremor
     Route: 065
  25. PRIMIDONE [Suspect]
     Active Substance: PRIMIDONE
     Indication: Parkinson^s disease
  26. PRIMIDONE [Suspect]
     Active Substance: PRIMIDONE
     Indication: Head titubation
  27. PRIMIDONE [Suspect]
     Active Substance: PRIMIDONE
     Indication: Resting tremor
  28. PROPRANOLOL HYDROCHLORIDE [Suspect]
     Active Substance: PROPRANOLOL HYDROCHLORIDE
     Indication: Parkinsonian rest tremor
     Route: 065
  29. PROPRANOLOL HYDROCHLORIDE [Suspect]
     Active Substance: PROPRANOLOL HYDROCHLORIDE
     Indication: Parkinson^s disease
  30. PROPRANOLOL HYDROCHLORIDE [Suspect]
     Active Substance: PROPRANOLOL HYDROCHLORIDE
     Indication: Head titubation
  31. PROPRANOLOL HYDROCHLORIDE [Suspect]
     Active Substance: PROPRANOLOL HYDROCHLORIDE
     Indication: Resting tremor
  32. ROPINIROLE HYDROCHLORIDE [Suspect]
     Active Substance: ROPINIROLE HYDROCHLORIDE
     Indication: Parkinsonian rest tremor
     Route: 065
  33. ROPINIROLE HYDROCHLORIDE [Suspect]
     Active Substance: ROPINIROLE HYDROCHLORIDE
     Indication: Parkinson^s disease
  34. ROPINIROLE HYDROCHLORIDE [Suspect]
     Active Substance: ROPINIROLE HYDROCHLORIDE
     Indication: Head titubation
  35. ROPINIROLE HYDROCHLORIDE [Suspect]
     Active Substance: ROPINIROLE HYDROCHLORIDE
     Indication: Resting tremor
  36. SELEGILINE [Suspect]
     Active Substance: SELEGILINE
     Indication: Dysphonia
     Route: 065
  37. SELEGILINE [Suspect]
     Active Substance: SELEGILINE
     Indication: Tremor
  38. TRIHEXYPHENIDYL [Suspect]
     Active Substance: TRIHEXYPHENIDYL
     Indication: Parkinsonian rest tremor
     Route: 065
  39. TRIHEXYPHENIDYL [Suspect]
     Active Substance: TRIHEXYPHENIDYL
     Indication: Parkinson^s disease
  40. TRIHEXYPHENIDYL [Suspect]
     Active Substance: TRIHEXYPHENIDYL
     Indication: Head titubation
  41. TRIHEXYPHENIDYL [Suspect]
     Active Substance: TRIHEXYPHENIDYL
     Indication: Resting tremor

REACTIONS (5)
  - Dizziness [Unknown]
  - Hallucination [Unknown]
  - Oedema peripheral [Unknown]
  - Somnolence [Unknown]
  - Off label use [Unknown]
